FAERS Safety Report 6647702-4 (Version None)
Quarter: 2010Q1

REPORT INFORMATION
  Report Type: 
  Country: None (occurrence: None)
  Receive Date: 20100323
  Receipt Date: 20100316
  Transmission Date: 20100710
  Serious: Yes (Other)
  Sender: FDA-Public Use
  Company Number: US-BRISTOL-MYERS SQUIBB COMPANY-15022460

PATIENT

DRUGS (1)
  1. ABILIFY [Suspect]

REACTIONS (1)
  - COLOUR BLINDNESS [None]
